FAERS Safety Report 8861568 (Version 1)
Quarter: 2012Q4

REPORT INFORMATION
  Report Type: Spontaneous
  Country: US (occurrence: None)
  Receive Date: 20121025
  Receipt Date: 20121025
  Transmission Date: 20130627
  Serious: Yes (Hospitalization, Other)
  Sender: FDA-Public Use
  Company Number: None

PATIENT
  Age: 71 Year
  Sex: Female

DRUGS (1)
  1. WARFARIN [Suspect]
     Dosage: 10 mg PO daily
     Route: 048
     Dates: start: 20120506, end: 20120509

REACTIONS (5)
  - International normalised ratio increased [None]
  - Renal failure acute [None]
  - Abdominal wall haematoma [None]
  - Hypotension [None]
  - Abdominal pain [None]
